FAERS Safety Report 17004581 (Version 3)
Quarter: 2021Q3

REPORT INFORMATION
  Report Type: Report from Study
  Country: JP (occurrence: JP)
  Receive Date: 20191107
  Receipt Date: 20210813
  Transmission Date: 20211014
  Serious: Yes (Death, Life-Threatening, Hospitalization, Other)
  Sender: FDA-Public Use
  Company Number: JP-ASTELLAS-2018JP024128

PATIENT
  Age: 76 Year
  Sex: Female
  Weight: 48 kg

DRUGS (18)
  1. ASP2215 [Suspect]
     Active Substance: GILTERITINIB
     Route: 048
     Dates: end: 20190913
  2. VIDAZA [Concomitant]
     Active Substance: AZACITIDINE
     Dosage: 500 MG/ DAY, 100MG?5
     Route: 041
     Dates: start: 20190628, end: 20190702
  3. URSODEOXYCHOLIC ACID [Concomitant]
     Active Substance: URSODIOL
     Indication: ALANINE AMINOTRANSFERASE INCREASED
  4. VIDAZA [Concomitant]
     Active Substance: AZACITIDINE
     Indication: ACUTE MYELOID LEUKAEMIA
     Dosage: 520 MG/ DAY, UNKNOWN FREQ., 110MG?2, 100MG?3
     Route: 041
     Dates: start: 20181212, end: 20181216
  5. VIDAZA [Concomitant]
     Active Substance: AZACITIDINE
     Route: 041
     Dates: start: 20190326, end: 20190326
  6. URSODEOXYCHOLIC ACID [Concomitant]
     Active Substance: URSODIOL
     Indication: ASPARTATE AMINOTRANSFERASE INCREASED
  7. VIDAZA [Concomitant]
     Active Substance: AZACITIDINE
     Dosage: 500 MG/ DAY, 100MG?5
     Route: 041
     Dates: start: 20190831, end: 20190904
  8. VIDAZA [Concomitant]
     Active Substance: AZACITIDINE
     Dosage: 500 MG/ DAY, 100MG?5
     Route: 041
     Dates: start: 20190722, end: 20190726
  9. FILGRASTIM RECOMBINANT [Concomitant]
     Indication: NEUTROPHIL COUNT DECREASED
     Dosage: UNK UNK, UNKNOWN FREQ.
     Route: 065
  10. VIDAZA [Concomitant]
     Active Substance: AZACITIDINE
     Dosage: 530 MG/ DAY, UNKNOWN FREQ., 110MG?3, 100MG?2
     Route: 041
     Dates: start: 20190511, end: 20190515
  11. CEFAZOLIN SODIUM. [Concomitant]
     Active Substance: CEFAZOLIN SODIUM
     Indication: FEBRILE NEUTROPENIA
     Dosage: UNK UNK, UNKNOWN FREQ.
     Route: 065
  12. ASP2215 [Suspect]
     Active Substance: GILTERITINIB
     Indication: ACUTE MYELOID LEUKAEMIA REFRACTORY
     Route: 050
     Dates: start: 20181217
  13. ISEPAMICIN SULFATE. [Concomitant]
     Active Substance: ISEPAMICIN SULFATE
     Indication: FEBRILE NEUTROPENIA
     Dosage: UNK UNK, UNKNOWN FREQ.
     Route: 065
  14. VIDAZA [Concomitant]
     Active Substance: AZACITIDINE
     Dosage: 520 MG/ DAY, UNKNOWN FREQ., 100MG?3, 110MG?2
     Route: 041
     Dates: start: 20190202, end: 20190206
  15. VIDAZA [Concomitant]
     Active Substance: AZACITIDINE
     Dosage: 520 MG/ DAY, UNKNOWN FREQ., 110MG?2, 100MG?3
     Route: 041
     Dates: start: 20190228, end: 20190304
  16. VIDAZA [Concomitant]
     Active Substance: AZACITIDINE
     Dosage: 500 MG/ DAY, 100MG?5
     Route: 041
     Dates: start: 20190606, end: 20190610
  17. VIDAZA [Concomitant]
     Active Substance: AZACITIDINE
     Dosage: 500 MG/ DAY, 100MG?5
     Route: 041
     Dates: start: 20190811, end: 20190815
  18. URSODEOXYCHOLIC ACID [Concomitant]
     Active Substance: URSODIOL
     Indication: GAMMA-GLUTAMYLTRANSFERASE INCREASED
     Dosage: UNK UNK, UNKNOWN FREQ.
     Route: 065

REACTIONS (12)
  - Alanine aminotransferase increased [Not Recovered/Not Resolved]
  - Off label use [Unknown]
  - Neutrophil count decreased [Recovered/Resolved]
  - Platelet count decreased [Recovered/Resolved]
  - Blood creatinine increased [Not Recovered/Not Resolved]
  - Wrong technique in product usage process [Unknown]
  - Aspartate aminotransferase increased [Not Recovered/Not Resolved]
  - Pericardial effusion [Not Recovered/Not Resolved]
  - Gamma-glutamyltransferase increased [Not Recovered/Not Resolved]
  - Anaemia [Recovered/Resolved]
  - Febrile neutropenia [Recovered/Resolved]
  - Product use issue [Unknown]

NARRATIVE: CASE EVENT DATE: 20181217
